FAERS Safety Report 8477185 (Version 2)
Quarter: 2013Q1

REPORT INFORMATION
  Report Type: Spontaneous
  Country: BR (occurrence: BR)
  Receive Date: 20120326
  Receipt Date: 20130313
  Transmission Date: 20140127
  Serious: Yes (Hospitalization)
  Sender: FDA-Public Use
  Company Number: BR-ASTRAZENECA-2012SE18766

PATIENT
  Age: 57 Year
  Sex: Male
  Weight: 87 kg

DRUGS (8)
  1. ATENOLOL [Suspect]
     Route: 048
     Dates: start: 2008
  2. MONOCORDIL [Suspect]
     Route: 048
     Dates: start: 2008
  3. CRESTOR [Suspect]
     Indication: BLOOD CHOLESTEROL INCREASED
     Route: 048
     Dates: end: 2008
  4. CRESTOR [Suspect]
     Indication: BLOOD CHOLESTEROL INCREASED
     Route: 048
     Dates: start: 2008
  5. CLOPIDOGREL [Suspect]
     Indication: CHEST PAIN
     Route: 048
     Dates: start: 2008, end: 201204
  6. EZETROL [Concomitant]
     Route: 065
     Dates: start: 2008
  7. ASA [Concomitant]
     Route: 048
     Dates: start: 1998
  8. DIOVAN [Concomitant]
     Route: 048
     Dates: start: 1998

REACTIONS (3)
  - Myocardial infarction [Recovered/Resolved]
  - Chest pain [Not Recovered/Not Resolved]
  - Intentional drug misuse [Not Recovered/Not Resolved]
